FAERS Safety Report 24388544 (Version 1)
Quarter: 2024Q4

REPORT INFORMATION
  Report Type: Spontaneous
  Country: DK (occurrence: DK)
  Receive Date: 20241002
  Receipt Date: 20241002
  Transmission Date: 20250115
  Serious: Yes (Hospitalization)
  Sender: ACIC FINE CHEMICALS
  Company Number: DK-ACIC Fine Chemicals Inc-2162375

PATIENT
  Age: 49 Year
  Sex: Female

DRUGS (1)
  1. BACLOFEN [Suspect]
     Active Substance: BACLOFEN
     Indication: Product used for unknown indication

REACTIONS (2)
  - Toxic encephalopathy [Recovered/Resolved with Sequelae]
  - Overdose [Recovered/Resolved with Sequelae]
